FAERS Safety Report 22301361 (Version 2)
Quarter: 2023Q2

REPORT INFORMATION
  Report Type: Spontaneous
  Country: US (occurrence: US)
  Receive Date: 20230509
  Receipt Date: 20230605
  Transmission Date: 20230721
  Serious: Yes (Other)
  Sender: FDA-Public Use
  Company Number: US-AMGEN-USASP2023078218

PATIENT
  Sex: Female

DRUGS (1)
  1. OTEZLA [Suspect]
     Active Substance: APREMILAST
     Indication: Psoriasis
     Dosage: UNK UNK, QD
     Route: 048

REACTIONS (2)
  - Hepatic cirrhosis [Unknown]
  - Splenomegaly [Unknown]

NARRATIVE: CASE EVENT DATE: 20230101
